FAERS Safety Report 10542564 (Version 2)
Quarter: 2014Q4

REPORT INFORMATION
  Report Type: Spontaneous
  Country: RS (occurrence: RS)
  Receive Date: 20141027
  Receipt Date: 20141118
  Transmission Date: 20150529
  Serious: Yes (Other)
  Sender: FDA-Public Use
  Company Number: RS-AMGEN-SRBSP2014082148

PATIENT
  Age: 66 Year
  Sex: Female

DRUGS (14)
  1. DIKLOFEN DUO [Concomitant]
     Dosage: 75 MG, QD
     Dates: start: 20091202
  2. METHOTREXATE [Concomitant]
     Active Substance: METHOTREXATE
     Indication: RHEUMATOID ARTHRITIS
     Dosage: 10 MG, WEEKLY
     Route: 048
     Dates: start: 20091202, end: 201001
  3. ENBREL [Suspect]
     Active Substance: ETANERCEPT
     Dosage: 50 MG, WEEKLY
     Route: 058
     Dates: start: 20110601
  4. METHOTREXATE [Concomitant]
     Active Substance: METHOTREXATE
     Dosage: 10 MG, WEEKLY
     Dates: start: 201106, end: 20111221
  5. FOLAN [Concomitant]
     Active Substance: FOLIC ACID
     Dosage: 2TBL PER WEEK
     Dates: start: 20091202
  6. RESOCHIN [Concomitant]
     Active Substance: NIFEDIPINE
     Indication: RHEUMATOID ARTHRITIS
     Dosage: 250 MG, UNK
     Dates: start: 2005, end: 20101021
  7. ENBREL [Suspect]
     Active Substance: ETANERCEPT
     Indication: RHEUMATOID ARTHRITIS
     Dosage: 50 MG, WEEKLY
     Route: 058
     Dates: start: 20091202, end: 201001
  8. METHOTREXATE [Concomitant]
     Active Substance: METHOTREXATE
     Dosage: 10 MG, WEEKLY
     Dates: start: 20101021, end: 2011
  9. METHOTREXATE [Concomitant]
     Active Substance: METHOTREXATE
     Dosage: 7.5 MG, WEEKLY
     Dates: start: 20111221
  10. ENBREL [Suspect]
     Active Substance: ETANERCEPT
     Dosage: 50 MG, WEEKLY
     Route: 065
     Dates: start: 201002, end: 2011
  11. METHOTREXATE [Concomitant]
     Active Substance: METHOTREXATE
     Dosage: 15 MG, WEEKLY
     Dates: start: 20100205
  12. FOLAN [Concomitant]
     Active Substance: FOLIC ACID
     Dosage: UNK, A TBL ONE DAY AFTER METHOTREXATE
  13. ENBREL [Suspect]
     Active Substance: ETANERCEPT
     Dosage: UNK
     Route: 065
  14. METHOTREXATE [Concomitant]
     Active Substance: METHOTREXATE
     Dosage: 10 MG, UNK
     Route: 048

REACTIONS (12)
  - Arthralgia [Unknown]
  - Lung disorder [Unknown]
  - Bone erosion [Unknown]
  - Platelet count decreased [Recovered/Resolved]
  - Joint swelling [Recovered/Resolved]
  - Synovitis [Unknown]
  - Arthropathy [Unknown]
  - Pneumonia [Recovered/Resolved]
  - Accident [Recovered/Resolved]
  - Neuralgia [Recovered/Resolved]
  - Ophthalmic herpes zoster [Recovered/Resolved with Sequelae]
  - Cyst [Unknown]

NARRATIVE: CASE EVENT DATE: 20100116
